FAERS Safety Report 7608570-7 (Version None)
Quarter: 2011Q3

REPORT INFORMATION
  Report Type: 
  Country: None (occurrence: None)
  Receive Date: 20110714
  Receipt Date: 20110705
  Transmission Date: 20111222
  Serious: Yes (Other)
  Sender: FDA-Public Use
  Company Number: PHHY2009JP31821

PATIENT
  Sex: Female

DRUGS (13)
  1. TASIGNA [Suspect]
     Indication: CHRONIC MYELOID LEUKAEMIA
     Dosage: 200 MG, UNK
     Route: 048
     Dates: start: 20090501, end: 20090608
  2. TASIGNA [Suspect]
     Dosage: 200 MG, UNK
     Route: 048
     Dates: start: 20090707, end: 20090713
  3. LANSOPRAZOLE [Concomitant]
  4. TASIGNA [Suspect]
     Dosage: 400 MG, UNK
     Route: 048
     Dates: start: 20090609, end: 20090706
  5. TASIGNA [Suspect]
     Dosage: 200 MG, DAILY
     Route: 048
     Dates: start: 20100331, end: 20100426
  6. LASIX [Concomitant]
     Route: 048
  7. MEILAX [Concomitant]
  8. TASIGNA [Suspect]
     Dosage: 200 MG, DAILY
     Route: 048
     Dates: start: 20090908, end: 20091124
  9. POSTERISAN [Concomitant]
  10. TASIGNA [Suspect]
     Dosage: 200 MG, DAILY
     Route: 048
     Dates: start: 20091223, end: 20100119
  11. TASIGNA [Suspect]
     Dosage: 200 MG, DAILY
     Route: 048
     Dates: start: 20100512
  12. TASIGNA [Suspect]
     Dosage: 200 MG, DAILY
     Route: 048
     Dates: start: 20100217, end: 20100316
  13. AMLODIPINE [Concomitant]

REACTIONS (7)
  - MALAISE [None]
  - PLATELET COUNT DECREASED [None]
  - PANCYTOPENIA [None]
  - PLATELET COUNT INCREASED [None]
  - HYPOAESTHESIA [None]
  - DECREASED APPETITE [None]
  - GENERALISED OEDEMA [None]
